FAERS Safety Report 18305509 (Version 1)
Quarter: 2020Q3

REPORT INFORMATION
  Report Type: Spontaneous
  Country: US (occurrence: US)
  Receive Date: 20200923
  Receipt Date: 20200923
  Transmission Date: 20201103
  Serious: Yes (Hospitalization)
  Sender: FDA-Public Use
  Company Number: US-OSMOTICA_PHARMACEUTICAL_US_LLC-POI0573202000463

PATIENT
  Age: 89 Year
  Sex: Male

DRUGS (4)
  1. SIMVASTATIN. [Concomitant]
     Active Substance: SIMVASTATIN
     Indication: PRODUCT USED FOR UNKNOWN INDICATION
  2. OSMOLEX ER [Suspect]
     Active Substance: AMANTADINE
     Indication: GAIT DISTURBANCE
  3. OSMOLEX ER [Suspect]
     Active Substance: AMANTADINE
     Indication: PARKINSON^S DISEASE
     Dosage: ALTERNATING DOSE OF 1 129 MG TABLET FOR TWO DAYS
     Dates: start: 2020
  4. OSMOLEX ER [Suspect]
     Active Substance: AMANTADINE
     Indication: TREMOR
     Dosage: ALTERNATING DOSE OF 1 193 MG TABLET FOR ONE DAY
     Dates: start: 2020

REACTIONS (3)
  - Fall [Recovering/Resolving]
  - Head injury [Recovered/Resolved]
  - Hemiparesis [Recovering/Resolving]

NARRATIVE: CASE EVENT DATE: 202009
